FAERS Safety Report 12306897 (Version 2)
Quarter: 2016Q2

REPORT INFORMATION
  Report Type: Spontaneous
  Country: US (occurrence: MY)
  Receive Date: 20160426
  Receipt Date: 20160603
  Transmission Date: 20160815
  Serious: Yes (Other)
  Sender: FDA-Public Use
  Company Number: MY-FRI-1000084089

PATIENT
  Age: 44 Year
  Sex: Female
  Weight: 60 kg

DRUGS (3)
  1. SEROQUEL [Suspect]
     Active Substance: QUETIAPINE FUMARATE
     Indication: BIPOLAR DISORDER
     Dosage: 100 MG TITRATED TO 200 MG
     Route: 065
     Dates: start: 20160314, end: 20160317
  2. SAPHRIS [Suspect]
     Active Substance: ASENAPINE MALEATE
     Indication: BIPOLAR DISORDER
     Dosage: 5MG IN THE MORNING AND 10 MG OVERNIGHT
     Route: 060
     Dates: start: 20160317, end: 20160329
  3. EPILIM [Concomitant]
     Active Substance: VALPROATE SODIUM
     Dates: start: 20160314

REACTIONS (1)
  - Hyperkalaemia [Recovered/Resolved]

NARRATIVE: CASE EVENT DATE: 20160329
